FAERS Safety Report 5987297-1 (Version None)
Quarter: 2008Q4

REPORT INFORMATION
  Report Type: 
  Country: None (occurrence: None)
  Receive Date: 20081203
  Receipt Date: 20081120
  Transmission Date: 20090506
  Serious: Yes (Hospitalization)
  Sender: FDA-Public Use
  Company Number: 004997

PATIENT
  Age: 73 Year
  Sex: Female

DRUGS (5)
  1. PLETAL [Suspect]
     Indication: PERIPHERAL VASCULAR DISORDER
     Dosage: 100 MG, BID, ORAL
     Route: 048
     Dates: start: 20070820, end: 20080901
  2. ADALAT SL - SLOW RELEASE (NIFEDIPINE) [Concomitant]
  3. ATENOLOL [Concomitant]
  4. PERINDOPRIL ERBUMINE [Concomitant]
  5. ROSUVASTATIN CALCIUM [Concomitant]

REACTIONS (1)
  - HAEMORRHAGIC STROKE [None]
